FAERS Safety Report 6491054-X (Version None)
Quarter: 2009Q4

REPORT INFORMATION
  Report Type: 
  Country: None (occurrence: None)
  Receive Date: 20091211
  Receipt Date: 20091202
  Transmission Date: 20100525
  Serious: Yes (Other)
  Sender: FDA-Public Use
  Company Number: US-ASTRAZENECA-2009SE29922

PATIENT
  Age: 56 Year
  Sex: Male

DRUGS (3)
  1. CRESTOR [Suspect]
     Route: 048
  2. DIOVAN [Concomitant]
  3. NORVASC [Concomitant]

REACTIONS (2)
  - ABNORMAL DREAMS [None]
  - SUICIDAL IDEATION [None]
